FAERS Safety Report 8579666-0 (Version None)
Quarter: 2012Q3

REPORT INFORMATION
  Report Type: 
  Country: None (occurrence: None)
  Receive Date: 20120808
  Receipt Date: 20120807
  Transmission Date: 20120928
  Serious: Yes (Hospitalization)
  Sender: FDA-Public Use
  Company Number: US-ROCHE-1060740

PATIENT
  Age: 77 Year
  Sex: Male
  Weight: 66.6 kg

DRUGS (14)
  1. ONDANSETRON [Concomitant]
     Indication: NAUSEA
     Route: 048
     Dates: start: 20120227
  2. NAPROXEN (ALEVE) [Concomitant]
     Indication: OSTEOARTHRITIS
     Route: 048
     Dates: start: 20120217
  3. AVASTIN [Suspect]
     Indication: NEOPLASM
     Dosage: DATE OF LAST DOS PRIOR TO SAE: 13/FEB/2012,
     Route: 042
  4. ZANTAC [Concomitant]
     Indication: GASTROOESOPHAGEAL REFLUX DISEASE
     Route: 048
     Dates: start: 20120209
  5. MILK OF MAGNESIA TAB [Concomitant]
     Indication: CONSTIPATION
     Route: 048
     Dates: start: 20120220
  6. GDC-0980 (PI3K/MTOR INHIBITOR) [Suspect]
     Indication: NEOPLASM
     Dosage: LAST DOSE: 25 MG, DATE OF LAST DOSE PRIOR TO SAE 5/APR/2012
     Route: 048
  7. CARBOPLATIN [Suspect]
     Indication: NEOPLASM
     Dosage: LAST DOSE: 648 MG, DATE OF LAST DOS PRIOR TO SAE:13/FEB/2012, LAST DOSE: 03/APR/2012
     Route: 042
  8. ACYCLOVIR [Concomitant]
     Indication: RASH
  9. RESTORIL [Concomitant]
     Indication: INSOMNIA
     Route: 048
     Dates: start: 20120305
  10. IMODIUM [Concomitant]
     Indication: DIARRHOEA
     Route: 048
     Dates: start: 20120220
  11. ONDANSETRON [Concomitant]
     Indication: VOMITING
  12. PACLITAXEL [Suspect]
     Indication: NEOPLASM
     Dosage: LAST DOSE: 360 MG, DATE OF LAST DOSE PRIOR TO SAE: 13/FEB/2012, LAST DOSE: 05/APR/2012
     Route: 042
  13. PLAVIX [Concomitant]
     Indication: CORONARY ARTERY DISEASE
     Route: 048
     Dates: start: 20110214
  14. DICYCLOMINE [Concomitant]
     Indication: IRRITABLE BOWEL SYNDROME
     Route: 048
     Dates: start: 20120313

REACTIONS (2)
  - NEUTROPENIA [None]
  - PNEUMONIA [None]
